FAERS Safety Report 15687722 (Version 2)
Quarter: 2019Q1

REPORT INFORMATION
  Report Type: Spontaneous
  Country: ES (occurrence: ES)
  Receive Date: 20181205
  Receipt Date: 20190111
  Transmission Date: 20190417
  Serious: Yes (Other)
  Sender: FDA-Public Use
  Company Number: ES-ASTELLAS-2018US051173

PATIENT
  Age: 80 Year
  Sex: Male

DRUGS (5)
  1. FLUCONAZOLE. [Concomitant]
     Active Substance: FLUCONAZOLE
     Route: 065
     Dates: start: 201603
  2. FLUCONAZOLE. [Concomitant]
     Active Substance: FLUCONAZOLE
     Dosage: HIGH DOSES, UNKNOWN FREQ.
     Route: 065
     Dates: start: 201606
  3. MICAFUNGIN. [Suspect]
     Active Substance: MICAFUNGIN SODIUM
     Dosage: 150 MG, ONCE DAILY (EVERY 24  HOURS)
     Route: 065
  4. FLUCONAZOLE. [Concomitant]
     Active Substance: FLUCONAZOLE
     Indication: SYSTEMIC CANDIDA
     Dosage: 400 MG, ONCE DAILY (FOR 6 WEEKS)
     Route: 065
     Dates: start: 201601
  5. MICAFUNGIN. [Suspect]
     Active Substance: MICAFUNGIN SODIUM
     Indication: SYSTEMIC CANDIDA
     Route: 065
     Dates: start: 201606

REACTIONS (2)
  - Condition aggravated [Not Recovered/Not Resolved]
  - Drug resistance [Not Recovered/Not Resolved]

NARRATIVE: CASE EVENT DATE: 2016
